FAERS Safety Report 17938469 (Version 1)
Quarter: 2020Q2

REPORT INFORMATION
  Report Type: Report from Study
  Country: US (occurrence: US)
  Receive Date: 20200624
  Receipt Date: 20200624
  Transmission Date: 20200714
  Serious: Yes (Other)
  Sender: FDA-Public Use
  Company Number: US-EISAI MEDICAL RESEARCH-EC-2020-076225

PATIENT
  Age: 74 Year
  Sex: Female
  Weight: 59.4 kg

DRUGS (12)
  1. VITAMIN B12 [Concomitant]
     Active Substance: CYANOCOBALAMIN
  2. METOCLOPRAMIDE. [Concomitant]
     Active Substance: METOCLOPRAMIDE
  3. AMLODIPINE [Concomitant]
     Active Substance: AMLODIPINE BESYLATE
  4. LENVIMA [Suspect]
     Active Substance: LENVATINIB
     Dosage: ALTERNATING 10MG ONE DAY, THEN 4MG THE NEXT DAY
     Route: 048
     Dates: start: 2020
  5. KEYTRUDA [Concomitant]
     Active Substance: PEMBROLIZUMAB
  6. MEGESTROL [Concomitant]
     Active Substance: MEGESTROL
  7. GABAPENTIN. [Concomitant]
     Active Substance: GABAPENTIN
  8. PROTONIX [Concomitant]
     Active Substance: PANTOPRAZOLE SODIUM
  9. LORAZEPAM. [Concomitant]
     Active Substance: LORAZEPAM
  10. LENVIMA [Suspect]
     Active Substance: LENVATINIB
     Indication: UTERINE CANCER
     Route: 048
     Dates: start: 20200221, end: 2020
  11. VITAMIN D [Concomitant]
     Active Substance: VITAMIN D NOS
  12. LEVOTHYROXINE. [Concomitant]
     Active Substance: LEVOTHYROXINE

REACTIONS (1)
  - Aplastic anaemia [Unknown]

NARRATIVE: CASE EVENT DATE: 2020
